FAERS Safety Report 24222962 (Version 2)
Quarter: 2025Q3

REPORT INFORMATION
  Report Type: Spontaneous
  Country: CA (occurrence: CA)
  Receive Date: 20240819
  Receipt Date: 20250722
  Transmission Date: 20251021
  Serious: Yes (Other)
  Sender: SANDOZ
  Company Number: CA-SANDOZ-SDZ2024CA005984

PATIENT
  Age: 41 Year
  Sex: Female

DRUGS (29)
  1. BETAMETHASONE [Suspect]
     Active Substance: BETAMETHASONE
     Indication: Dermatitis atopic
     Route: 061
  2. BETAMETHASONE [Suspect]
     Active Substance: BETAMETHASONE
     Indication: Dermatitis papillaris capillitii
     Route: 065
  3. BETAMETHASONE DIPROPIONATE\CALCIPOTRIENE [Suspect]
     Active Substance: BETAMETHASONE DIPROPIONATE\CALCIPOTRIENE
     Indication: Dermatitis atopic
     Route: 003
  4. BETAMETHASONE DIPROPIONATE\CALCIPOTRIENE [Suspect]
     Active Substance: BETAMETHASONE DIPROPIONATE\CALCIPOTRIENE
     Indication: Dermatitis papillaris capillitii
     Route: 003
  5. BETAMETHASONE\SALICYLIC ACID [Suspect]
     Active Substance: BETAMETHASONE\SALICYLIC ACID
     Indication: Dermatitis papillaris capillitii
     Route: 061
  6. BETAMETHASONE\SALICYLIC ACID [Suspect]
     Active Substance: BETAMETHASONE\SALICYLIC ACID
     Route: 065
  7. CLINDAMYCIN PHOSPHATE [Suspect]
     Active Substance: CLINDAMYCIN PHOSPHATE
     Route: 003
  8. CLINDAMYCIN PHOSPHATE [Suspect]
     Active Substance: CLINDAMYCIN PHOSPHATE
     Indication: Dermatitis atopic
     Route: 061
  9. CLINDAMYCIN PHOSPHATE [Suspect]
     Active Substance: CLINDAMYCIN PHOSPHATE
     Indication: Dermatitis papillaris capillitii
     Route: 065
  10. CLOBETASOL [Suspect]
     Active Substance: CLOBETASOL
     Indication: Dermatitis atopic
     Route: 061
  11. CLOBETASOL [Suspect]
     Active Substance: CLOBETASOL
     Indication: Dermatitis papillaris capillitii
     Route: 065
  12. CLOBETASOL PROPIONATE [Suspect]
     Active Substance: CLOBETASOL PROPIONATE
     Indication: Dermatitis papillaris capillitii
     Route: 065
  13. CLOBETASOL PROPIONATE [Suspect]
     Active Substance: CLOBETASOL PROPIONATE
     Indication: Dermatitis atopic
  14. DOXYCYCLINE HYCLATE [Suspect]
     Active Substance: DOXYCYCLINE HYCLATE
     Indication: Dermatitis atopic
     Route: 065
  15. DOXYCYCLINE HYCLATE [Suspect]
     Active Substance: DOXYCYCLINE HYCLATE
     Indication: Dermatitis papillaris capillitii
     Route: 065
  16. FUSIDIC ACID [Suspect]
     Active Substance: FUSIDIC ACID
     Route: 003
  17. FUSIDIC ACID [Suspect]
     Active Substance: FUSIDIC ACID
     Indication: Dermatitis atopic
     Route: 061
  18. FUSIDIC ACID [Suspect]
     Active Substance: FUSIDIC ACID
     Indication: Dermatitis papillaris capillitii
     Route: 065
  19. METHOTREXATE [Suspect]
     Active Substance: METHOTREXATE
     Indication: Dermatitis atopic
     Route: 065
  20. METHOTREXATE [Suspect]
     Active Substance: METHOTREXATE
     Indication: Dermatitis papillaris capillitii
     Route: 065
  21. MINOCYCLINE [Suspect]
     Active Substance: MINOCYCLINE HYDROCHLORIDE
     Indication: Dermatitis atopic
     Route: 065
  22. MINOCYCLINE [Suspect]
     Active Substance: MINOCYCLINE HYDROCHLORIDE
     Indication: Dermatitis papillaris capillitii
     Route: 065
  23. SALICYLIC ACID [Suspect]
     Active Substance: SALICYLIC ACID
     Route: 003
  24. SALICYLIC ACID [Suspect]
     Active Substance: SALICYLIC ACID
     Indication: Dermatitis atopic
     Route: 061
  25. SALICYLIC ACID [Suspect]
     Active Substance: SALICYLIC ACID
     Indication: Dermatitis papillaris capillitii
     Route: 065
  26. TRIAMCINOLONE [Suspect]
     Active Substance: TRIAMCINOLONE
     Indication: Dermatitis atopic
     Route: 026
  27. TRIAMCINOLONE [Suspect]
     Active Substance: TRIAMCINOLONE
     Indication: Dermatitis papillaris capillitii
     Route: 065
  28. DUPILUMAB [Concomitant]
     Active Substance: DUPILUMAB
     Indication: Dermatitis papillaris capillitii
     Route: 065
  29. DUPILUMAB [Concomitant]
     Active Substance: DUPILUMAB
     Indication: Dermatitis atopic

REACTIONS (4)
  - Treatment failure [Recovered/Resolved]
  - Drug ineffective [Unknown]
  - Drug ineffective for unapproved indication [Recovered/Resolved]
  - Off label use [Recovered/Resolved]
